FAERS Safety Report 6535014-9 (Version None)
Quarter: 2010Q1

REPORT INFORMATION
  Report Type: 
  Country: None (occurrence: None)
  Receive Date: 20100111
  Receipt Date: 20100111
  Transmission Date: 20100710
  Serious: Yes (Death)
  Sender: FDA-Public Use
  Company Number: None

PATIENT
  Age: 47 Year
  Sex: Male
  Weight: 79.8331 kg

DRUGS (2)
  1. RILUZOLE [Suspect]
     Indication: MALIGNANT MELANOMA
     Dosage: 50 MG BID PO
     Route: 048
     Dates: start: 20091123, end: 20091216
  2. RILUZOLE [Suspect]
     Indication: METASTASES TO CENTRAL NERVOUS SYSTEM
     Dosage: 50 MG BID PO
     Route: 048
     Dates: start: 20091123, end: 20091216

REACTIONS (1)
  - UNRESPONSIVE TO STIMULI [None]
